FAERS Safety Report 8270885-X (Version None)
Quarter: 2012Q2

REPORT INFORMATION
  Report Type: 
  Country: None (occurrence: None)
  Receive Date: 20120410
  Receipt Date: 20120410
  Transmission Date: 20120825
  Serious: Yes (Other)
  Sender: FDA-Public Use
  Company Number: None

PATIENT
  Age: 26 Year
  Sex: Female
  Weight: 70.306 kg

DRUGS (2)
  1. SPRINTEC [Concomitant]
  2. SPRINTEC [Suspect]
     Indication: CONTRACEPTION
     Route: 048
     Dates: start: 20090601, end: 20120320

REACTIONS (3)
  - PREGNANCY ON ORAL CONTRACEPTIVE [None]
  - REPRODUCTIVE TRACT DISORDER [None]
  - MATERNAL EXPOSURE DURING PREGNANCY [None]
